FAERS Safety Report 19715306 (Version 2)
Quarter: 2021Q3

REPORT INFORMATION
  Report Type: Spontaneous
  Country: GB (occurrence: GB)
  Receive Date: 20210818
  Receipt Date: 20210831
  Transmission Date: 20211014
  Serious: Yes (Other)
  Sender: FDA-Public Use
  Company Number: NVSC2021GB181400

PATIENT
  Age: 83 Year
  Sex: Female
  Weight: 42 kg

DRUGS (3)
  1. RIVASTIGMINE. [Suspect]
     Active Substance: RIVASTIGMINE
     Dosage: 10 MG, QD (EVERY ONE DAY)
     Route: 048
     Dates: start: 20210803, end: 20210803
  2. ESCITALOPRAM [Concomitant]
     Active Substance: ESCITALOPRAM OXALATE
     Indication: ILL-DEFINED DISORDER
     Dosage: UNK
     Route: 065
  3. RIVASTIGMINE. [Suspect]
     Active Substance: RIVASTIGMINE
     Indication: PARKINSON^S DISEASE
     Dosage: 4.5 MG, BID
     Route: 048
     Dates: start: 20210803, end: 20210803

REACTIONS (2)
  - Drug eruption [Recovered/Resolved]
  - Syncope [Recovered/Resolved]

NARRATIVE: CASE EVENT DATE: 20210803
